FAERS Safety Report 8156773-8 (Version None)
Quarter: 2012Q1

REPORT INFORMATION
  Report Type: 
  Country: None (occurrence: None)
  Receive Date: 20120222
  Receipt Date: 20111128
  Transmission Date: 20120608
  Serious: Yes (Hospitalization)
  Sender: FDA-Public Use
  Company Number: DE-INCYTE CORPORATION-2011IN000323

PATIENT
  Sex: Female
  Weight: 63 kg

DRUGS (13)
  1. INC424 [Suspect]
     Indication: MYELOFIBROSIS
     Dosage: 20 MG, BID
     Route: 048
     Dates: start: 20111112
  2. NEBIVOLOL [Concomitant]
  3. TORSEMIDE [Concomitant]
  4. LEXOTANIL [Concomitant]
  5. AMLODIPINE [Concomitant]
  6. SPIRONOLACTONE [Concomitant]
  7. PANTOPRAZOLE [Concomitant]
  8. ALLO-300 [Concomitant]
  9. LEVOTHYROXINE SODIUM [Concomitant]
  10. RASILEZ [Concomitant]
  11. MARCUMAR [Concomitant]
  12. DIPYRONE TAB [Concomitant]
  13. MAGNESIUM [Concomitant]

REACTIONS (1)
  - GASTROENTERITIS NOROVIRUS [None]
